FAERS Safety Report 10011815 (Version 2)
Quarter: 2014Q2

REPORT INFORMATION
  Report Type: Spontaneous
  Country: US (occurrence: US)
  Receive Date: 20140314
  Receipt Date: 20140421
  Transmission Date: 20141212
  Serious: Yes (Death)
  Sender: FDA-Public Use
  Company Number: US-UCBSA-114254

PATIENT
  Sex: Male
  Weight: 63 kg

DRUGS (3)
  1. VIMPAT [Suspect]
     Indication: CONVULSION
     Dosage: 50 MG IN AM AND 100 MG IN PM, TAKING FOR ABOUT A YEAR AND HALF
     Route: 048
  2. CARBAMAZIPINE [Concomitant]
     Indication: CONVULSION
     Dosage: TAKING FOR MANY YEARS-SINCE ATLEAST 2007
     Route: 048
  3. CARBA DOPA LEVA DOPA [Concomitant]
     Indication: PARKINSON^S DISEASE
     Dosage: TAKING FOR MANY YEARS-SINCE ATLEAST 2007
     Route: 048

REACTIONS (2)
  - Parkinson^s disease [Fatal]
  - Convulsion [Unknown]
